FAERS Safety Report 14922300 (Version 1)
Quarter: 2018Q2

REPORT INFORMATION
  Report Type: Report from Study
  Country: IT (occurrence: IT)
  Receive Date: 20180522
  Receipt Date: 20180522
  Transmission Date: 20180711
  Serious: Yes (Hospitalization)
  Sender: FDA-Public Use
  Company Number: IT-CONCORDIA PHARMACEUTICALS INC.-E2B_00011763

PATIENT
  Age: 84 Year
  Sex: Female

DRUGS (10)
  1. COMBIGAN 2 MG/ML + 5 MG/ML COLLIRIO, SOLUZIONE [Concomitant]
  2. SPIRIVA RESPIMAT 2,5 MICROGRAMMI, SOLUZIONE PER INALAZIONE [Concomitant]
  3. METFORMIN HYDROCHLORIDE. [Concomitant]
     Active Substance: METFORMIN HYDROCHLORIDE
  4. TRIATEC (RAMIPRIL) [Concomitant]
     Active Substance: RAMIPRIL
  5. LASIX [Concomitant]
     Active Substance: FUROSEMIDE
  6. LANOXIN [Suspect]
     Active Substance: DIGOXIN
     Indication: CARDIAC FAILURE
     Route: 048
  7. COUMADIN [Concomitant]
     Active Substance: WARFARIN SODIUM
  8. DILZENE 60 MG COMPRESSE A RILASCIO MODIFICATO [Concomitant]
  9. DIAMICRON 30 MG COMPRESSE A RILASCIO MODIFICATO [Concomitant]
  10. PANTORC 20 MG COMPRESSE GASTRORESISTENTI [Concomitant]
     Active Substance: PANTOPRAZOLE SODIUM

REACTIONS (3)
  - Bradyarrhythmia [Recovering/Resolving]
  - Asthenia [Recovering/Resolving]
  - Overdose [Recovering/Resolving]

NARRATIVE: CASE EVENT DATE: 20180118
